FAERS Safety Report 20114502 (Version 1)
Quarter: 2021Q4

REPORT INFORMATION
  Report Type: Spontaneous
  Country: US (occurrence: US)
  Receive Date: 20211125
  Receipt Date: 20211125
  Transmission Date: 20220303
  Serious: No
  Sender: FDA-Public Use
  Company Number: US-SA-SAC20211117001507

PATIENT
  Age: 47 Year
  Sex: Male

DRUGS (15)
  1. DUPIXENT [Suspect]
     Active Substance: DUPILUMAB
     Indication: Dermatitis atopic
     Dosage: 300 MG, QOW
     Route: 058
     Dates: start: 202012
  2. ALLEGRA ALLERGY [Concomitant]
     Active Substance: FEXOFENADINE HYDROCHLORIDE
  3. BETAMETHASONE [Concomitant]
     Active Substance: BETAMETHASONE
  4. BETAMETHASONE VALERATE [Concomitant]
     Active Substance: BETAMETHASONE VALERATE
  5. LORATADINE [Concomitant]
     Active Substance: LORATADINE
  6. FISH OIL [Concomitant]
     Active Substance: FISH OIL
  7. FLONASE ALLERGY RELIEF [Concomitant]
     Active Substance: FLUTICASONE PROPIONATE
  8. GENTEAL TEARS [HYPROMELLOSE] [Concomitant]
  9. OLOPATADINE [Concomitant]
     Active Substance: OLOPATADINE
  10. MINOCYCLINE [MINOCYCLINE HYDROCHLORIDE] [Concomitant]
  11. MINERALS\VITAMINS [Concomitant]
     Active Substance: MINERALS\VITAMINS
     Dosage: UNK
  12. STOOL SOFTENER (DOCUSATE) [Concomitant]
     Active Substance: DOCUSATE
  13. PROBIOTICS NOS [Concomitant]
     Active Substance: PROBIOTICS NOS
  14. HYDROCODONE [Concomitant]
     Active Substance: HYDROCODONE
  15. ACETAMINOPHEN [Concomitant]
     Active Substance: ACETAMINOPHEN

REACTIONS (12)
  - Sinus disorder [Unknown]
  - Hypersensitivity [Unknown]
  - Eczema [Unknown]
  - Condition aggravated [Unknown]
  - Erythema [Unknown]
  - Sleep disorder [Unknown]
  - Skin haemorrhage [Unknown]
  - Skin exfoliation [Unknown]
  - Pruritus [Unknown]
  - Rash [Unknown]
  - Dry skin [Unknown]
  - Drug ineffective [Unknown]

NARRATIVE: CASE EVENT DATE: 20210101
